FAERS Safety Report 16681674 (Version 2)
Quarter: 2019Q4

REPORT INFORMATION
  Report Type: Spontaneous
  Country: US (occurrence: US)
  Receive Date: 20190808
  Receipt Date: 20191103
  Transmission Date: 20200122
  Serious: Yes (Death, Other)
  Sender: FDA-Public Use
  Company Number: US-009507513-1908USA000909

PATIENT
  Age: 79 Year
  Sex: Male

DRUGS (4)
  1. NIVOLUMAB [Suspect]
     Active Substance: NIVOLUMAB
     Indication: NEUROENDOCRINE CARCINOMA OF THE SKIN
     Dosage: 1 MILLIGRAM/KILOGRAM WITH IPILIMUMAB (3 MG/KG), EVERY 3 WEEKS X 4
  2. NIVOLUMAB [Suspect]
     Active Substance: NIVOLUMAB
     Dosage: 3 MILLIGRAM/KILOGRAM MONOTHERAPY, EVERY 2 WEEKS, ALONG WITH INTENSITY-MODULATED RADIATION THERAPY
  3. IPILIMUMAB [Suspect]
     Active Substance: IPILIMUMAB
     Indication: NEUROENDOCRINE CARCINOMA OF THE SKIN
     Dosage: 3 MILLIGRAM/KILOGRAM WITH NIVOLUMAB (1 MG/KG), EVERY 3 WEEKS X 4
  4. KEYTRUDA [Suspect]
     Active Substance: PEMBROLIZUMAB
     Indication: NEUROENDOCRINE CARCINOMA OF THE SKIN
     Dosage: UNK

REACTIONS (3)
  - Immune-mediated adverse reaction [Fatal]
  - Off label use [Unknown]
  - Encephalopathy [Fatal]
